FAERS Safety Report 9595209 (Version 1)
Quarter: 2013Q4

REPORT INFORMATION
  Report Type: Spontaneous
  Country: US (occurrence: US)
  Receive Date: 20131004
  Receipt Date: 20131004
  Transmission Date: 20140711
  Serious: Yes (Hospitalization)
  Sender: FDA-Public Use
  Company Number: US-BAYER-2013-119989

PATIENT
  Age: 27 Year
  Sex: Female

DRUGS (9)
  1. YASMIN [Suspect]
  2. PREDNISONE [Concomitant]
  3. PRILOSEC [Concomitant]
  4. ATIVAN [Concomitant]
  5. MULTIVITAMIN [Concomitant]
  6. FLONASE [Concomitant]
  7. BIAXIN [Concomitant]
  8. ALBUTEROL [Concomitant]
  9. PROBIOTICA [Concomitant]

REACTIONS (2)
  - Pulmonary embolism [None]
  - Deep vein thrombosis [None]
